FAERS Safety Report 19981677 (Version 1)
Quarter: 2021Q4

REPORT INFORMATION
  Report Type: Spontaneous
  Country: FR (occurrence: FR)
  Receive Date: 20211021
  Receipt Date: 20211021
  Transmission Date: 20220304
  Serious: Yes (Death)
  Sender: FDA-Public Use
  Company Number: FR-PFIZER INC-2020003069

PATIENT

DRUGS (8)
  1. PREDNISONE [Suspect]
     Active Substance: PREDNISONE
     Indication: Diffuse large B-cell lymphoma
     Dosage: 40 MILLIGRAM/SQ. METER, CYCLE (D1 TO D5, 21-DAYS CYCLE)
  2. PREDNISONE [Suspect]
     Active Substance: PREDNISONE
     Dosage: 60 MILLIGRAM/SQ. METER (PER OS, DAYS -7 TO -1)
     Route: 048
  3. RITUXIMAB [Suspect]
     Active Substance: RITUXIMAB
     Indication: Diffuse large B-cell lymphoma
     Dosage: 1400 MILLIGRAM, CYCLE (TD ON D1 OF CYCLES 2-6)
     Route: 058
  4. RITUXIMAB [Suspect]
     Active Substance: RITUXIMAB
     Dosage: 375 MILLIGRAM/SQ. METER, CYCLE (ON D1, FIRST CYCLE)
     Route: 042
  5. CYCLOPHOSPHAMIDE [Suspect]
     Active Substance: CYCLOPHOSPHAMIDE
     Indication: Diffuse large B-cell lymphoma
     Dosage: 400 MILLIGRAM/SQ. METER, CYCLE (ON D1,21-DAYS CYCLE)
  6. DOXORUBICIN HYDROCHLORIDE [Suspect]
     Active Substance: DOXORUBICIN HYDROCHLORIDE
     Indication: Diffuse large B-cell lymphoma
     Dosage: 25 MILLIGRAM/SQ. METER, CYCLE (ON D1, 21-DAYS CYCLE)
  7. VINCRISTINE SULFATE [Suspect]
     Active Substance: VINCRISTINE SULFATE
     Indication: Diffuse large B-cell lymphoma
     Dosage: 1 MILLIGRAM, CYCLE (TD AT D-7)
     Route: 042
  8. VINCRISTINE SULFATE [Suspect]
     Active Substance: VINCRISTINE SULFATE
     Dosage: 1 MILLIGRAM, CYCLE (TD ON D1, 21-DAYS CYCLE)

REACTIONS (1)
  - Death [Fatal]
